FAERS Safety Report 9602014 (Version 2)
Quarter: 2013Q4

REPORT INFORMATION
  Report Type: Report from Study
  Country: US (occurrence: US)
  Receive Date: 20131007
  Receipt Date: 20131024
  Transmission Date: 20140711
  Serious: Yes (Death)
  Sender: FDA-Public Use
  Company Number: PHEH2013US020737

PATIENT
  Sex: Female

DRUGS (1)
  1. TOBI [Suspect]

REACTIONS (1)
  - Death [Fatal]
